FAERS Safety Report 19812256 (Version 2)
Quarter: 2022Q1

REPORT INFORMATION
  Report Type: Spontaneous
  Country: DE (occurrence: DE)
  Receive Date: 20210909
  Receipt Date: 20220219
  Transmission Date: 20220423
  Serious: Yes (Hospitalization, Other)
  Sender: FDA-Public Use
  Company Number: DE-TEVA-2021-DE-1951517

PATIENT
  Sex: Male

DRUGS (1)
  1. OXYCODONE [Suspect]
     Active Substance: OXYCODONE
     Dosage: 1-0-0-1
     Route: 065

REACTIONS (12)
  - Swelling face [Unknown]
  - Pharyngeal swelling [Unknown]
  - Swollen tongue [Unknown]
  - Lip swelling [Unknown]
  - Dysarthria [Unknown]
  - Respiratory arrest [Unknown]
  - Endotracheal intubation [Unknown]
  - Medical induction of coma [Unknown]
  - Pain [Unknown]
  - Panic attack [Unknown]
  - Fear of death [Not Recovered/Not Resolved]
  - Anaphylactic shock [Unknown]

NARRATIVE: CASE EVENT DATE: 20210101
